FAERS Safety Report 13674629 (Version 1)
Quarter: 2017Q2

REPORT INFORMATION
  Report Type: Spontaneous
  Country: CH (occurrence: CH)
  Receive Date: 20170621
  Receipt Date: 20170621
  Transmission Date: 20170830
  Serious: Yes (Other)
  Sender: FDA-Public Use
  Company Number: CH-UCBSA-2017023250

PATIENT
  Age: 33 Year
  Sex: Female

DRUGS (1)
  1. XYZAL [Suspect]
     Active Substance: LEVOCETIRIZINE DIHYDROCHLORIDE
     Indication: HYPERSENSITIVITY
     Dosage: 2.5 MG, ONCE DAILY (QD)
     Route: 048
     Dates: start: 2016

REACTIONS (2)
  - Exposure during pregnancy [Unknown]
  - Abortion missed [Recovered/Resolved]

NARRATIVE: CASE EVENT DATE: 2016
